FAERS Safety Report 6748755-5 (Version None)
Quarter: 2010Q2

REPORT INFORMATION
  Report Type: 
  Country: None (occurrence: None)
  Receive Date: 20100601
  Receipt Date: 20100518
  Transmission Date: 20101027
  Serious: Yes (Hospitalization, Other)
  Sender: FDA-Public Use
  Company Number: PHEH2008US10384

PATIENT
  Sex: Female
  Weight: 63.039 kg

DRUGS (13)
  1. RECLAST [Suspect]
     Indication: OSTEOPOROSIS POSTMENOPAUSAL
     Dosage: 5 MG/ 100ML ONCE YEARLY
     Route: 042
     Dates: start: 20081113, end: 20081113
  2. POTASSIUM PHOSPHATES [Concomitant]
     Indication: BLOOD PHOSPHORUS DECREASED
     Dosage: UNK
     Route: 048
  3. CALCIUM CARBONATE [Concomitant]
  4. VITAMIN D [Concomitant]
     Dosage: 500 MG, UNK
  5. MAGNESIUM [Concomitant]
  6. PARATHYROID HORMONES [Concomitant]
  7. PHOSPHORUS [Concomitant]
  8. CALCIUM GLUCONATE [Concomitant]
     Dosage: 1 GM AT 250 ML/HR RATE
     Route: 042
  9. LORAZEPAM [Concomitant]
     Dosage: 2 MG
  10. PREMARIN [Concomitant]
     Route: 048
  11. ZOFRAN [Concomitant]
     Indication: NAUSEA
     Dosage: 4 MG
     Route: 042
     Dates: start: 20081113
  12. ATIVAN [Concomitant]
     Indication: NAUSEA
     Dosage: 1 MG
     Route: 042
  13. PREMARIN [Concomitant]
     Route: 067

REACTIONS (32)
  - ALANINE AMINOTRANSFERASE INCREASED [None]
  - ARTHRALGIA [None]
  - ASPARTATE AMINOTRANSFERASE INCREASED [None]
  - ASTHENIA [None]
  - BLOOD PARATHYROID HORMONE INCREASED [None]
  - BLOOD PHOSPHORUS DECREASED [None]
  - BLOOD POTASSIUM DECREASED [None]
  - CHILLS [None]
  - DIZZINESS [None]
  - DYSPNOEA [None]
  - FACIAL PARESIS [None]
  - HAEMATOCRIT DECREASED [None]
  - HYPERHIDROSIS [None]
  - HYPOAESTHESIA [None]
  - HYPOKALAEMIA [None]
  - HYPOPHOSPHATAEMIA [None]
  - HYPOTENSION [None]
  - INCORRECT DRUG ADMINISTRATION DURATION [None]
  - MUSCLE SPASMS [None]
  - MUSCULAR WEAKNESS [None]
  - MYALGIA [None]
  - NAUSEA [None]
  - NEUTROPHIL COUNT DECREASED [None]
  - NYSTAGMUS [None]
  - PAIN IN EXTREMITY [None]
  - PALLOR [None]
  - PARAESTHESIA [None]
  - RED BLOOD CELL COUNT DECREASED [None]
  - SWELLING FACE [None]
  - TACHYCARDIA [None]
  - TETANY [None]
  - VITAMIN K DEFICIENCY [None]
